FAERS Safety Report 22124608 (Version 1)
Quarter: 2023Q1

REPORT INFORMATION
  Report Type: Spontaneous
  Country: DE (occurrence: None)
  Receive Date: 20230322
  Receipt Date: 20230322
  Transmission Date: 20230418
  Serious: Yes (Hospitalization, Other)
  Sender: FDA-Public Use
  Company Number: None

PATIENT
  Age: 90 Year
  Sex: Male
  Weight: 60 kg

DRUGS (11)
  1. STALEVO [Interacting]
     Active Substance: CARBIDOPA\ENTACAPONE\LEVODOPA
     Indication: Parkinson^s disease
     Dosage: 2-2-1, STRENGTH: 175 MG/43,75 MG/ 200 MG
     Route: 065
     Dates: start: 2021
  2. MCP-RATIOPHARM [Interacting]
     Active Substance: METOCLOPRAMIDE HYDROCHLORIDE
     Indication: Nausea
     Dosage: AS NECESSARY, STRENGTH: 10 MG/2 ML
     Route: 065
  3. MCP-RATIOPHARM [Interacting]
     Active Substance: METOCLOPRAMIDE HYDROCHLORIDE
     Route: 065
     Dates: start: 20230225, end: 20230228
  4. MCP-RATIOPHARM [Interacting]
     Active Substance: METOCLOPRAMIDE HYDROCHLORIDE
     Route: 040
  5. REGULAX [Concomitant]
     Indication: Constipation
     Route: 065
     Dates: start: 20230226
  6. XADAGO [Concomitant]
     Active Substance: SAFINAMIDE MESYLATE
     Indication: Parkinson^s disease
     Dosage: 1-0-0, STRENGTH: 50MG
     Route: 065
     Dates: start: 2022
  7. EDOXABAN [Concomitant]
     Active Substance: EDOXABAN
     Indication: Atrial fibrillation
     Dosage: 1-0-0, STRENGTH: 60MG
     Route: 065
     Dates: start: 2019
  8. LACTULOSE [Concomitant]
     Active Substance: LACTULOSE
     Indication: Constipation
     Route: 065
     Dates: start: 2022
  9. CARBIDOPA\LEVODOPA [Concomitant]
     Active Substance: CARBIDOPA\LEVODOPA
     Indication: Parkinson^s disease
     Dosage: 0-0-0-2, STRENGTH: 100/25MG
     Route: 065
     Dates: start: 2019
  10. METAMIZOLE [Concomitant]
     Active Substance: METAMIZOLE
     Indication: Pain
     Route: 065
     Dates: start: 20230226
  11. MEROPENEM [Concomitant]
     Active Substance: MEROPENEM
     Indication: Antibiotic therapy
     Route: 065
     Dates: start: 20230222

REACTIONS (2)
  - Parkinson^s disease [Recovering/Resolving]
  - Drug interaction [Recovering/Resolving]

NARRATIVE: CASE EVENT DATE: 20230227
